FAERS Safety Report 18696453 (Version 1)
Quarter: 2021Q1

REPORT INFORMATION
  Report Type: Spontaneous
  Country: US (occurrence: US)
  Receive Date: 20210104
  Receipt Date: 20210104
  Transmission Date: 20210419
  Serious: Yes (Death)
  Sender: FDA-Public Use
  Company Number: US-ROCHE-2559591

PATIENT
  Age: 87 Year
  Sex: Female
  Weight: 63 kg

DRUGS (11)
  1. ASPIRIN ENTERIC?COATED [Concomitant]
     Route: 048
  2. SODIUM CHLORIDE. [Concomitant]
     Active Substance: SODIUM CHLORIDE
     Dosage: 2 SPRAYS IN EACH NOSE, EVERY 4 HOURS WHILE AWAKE
  3. ACTIVASE [Suspect]
     Active Substance: ALTEPLASE
     Indication: ISCHAEMIC STROKE
     Route: 040
     Dates: start: 20200226, end: 20200226
  4. MELATONIN [Concomitant]
     Active Substance: MELATONIN
  5. SINGULAIR [Concomitant]
     Active Substance: MONTELUKAST SODIUM
  6. CALCIUM CARBONATE AND VITAMIN D [Concomitant]
     Active Substance: CALCIUM CARBONATE\VITAMIN D
     Dosage: 600MG/400MG 2 TABLETS DAILY
     Route: 048
  7. COLACE [Concomitant]
     Active Substance: DOCUSATE SODIUM
  8. REFRESH PLUS [Concomitant]
     Active Substance: CARBOXYMETHYLCELLULOSE SODIUM
     Dosage: 1 DROP TO EYES 4 TIMES A DAY (BOTH EYES)
  9. FERROUS SULFATE. [Concomitant]
     Active Substance: FERROUS SULFATE
     Dosage: 1 TABLET 2 TIMES A DAY WITH MEALS, EVERY OTHER DAY
  10. ACTIVASE [Suspect]
     Active Substance: ALTEPLASE
     Route: 042
     Dates: start: 20200226
  11. LASIX [Concomitant]
     Active Substance: FUROSEMIDE

REACTIONS (2)
  - Haemorrhage intracranial [Fatal]
  - Haemorrhagic transformation stroke [Fatal]

NARRATIVE: CASE EVENT DATE: 20200226
